FAERS Safety Report 6232480-3 (Version None)
Quarter: 2009Q2

REPORT INFORMATION
  Report Type: 
  Country: None (occurrence: None)
  Receive Date: 20090617
  Receipt Date: 20090610
  Transmission Date: 20091009
  Serious: Yes (Other)
  Sender: FDA-Public Use
  Company Number: AU-ROCHE-632394

PATIENT
  Age: 59 Year
  Sex: Female
  Weight: 62 kg

DRUGS (2)
  1. XELODA [Suspect]
     Route: 048
     Dates: start: 20090501, end: 20090501
  2. FLUOROURACIL [Concomitant]

REACTIONS (1)
  - ARTERIOSPASM CORONARY [None]
